FAERS Safety Report 19633841 (Version 1)
Quarter: 2021Q3

REPORT INFORMATION
  Report Type: Spontaneous
  Country: FR (occurrence: FR)
  Receive Date: 20210730
  Receipt Date: 20210730
  Transmission Date: 20211014
  Serious: Yes (Other)
  Sender: FDA-Public Use
  Company Number: FR-SUN PHARMACEUTICAL INDUSTRIES LTD-2021R1-305960

PATIENT
  Age: 19 Year
  Sex: Female

DRUGS (3)
  1. LEVONORGESTREL. [Suspect]
     Active Substance: LEVONORGESTREL
     Indication: HORMONE THERAPY
     Dosage: 100 MICROGRAM, CONTINOUS
     Route: 065
  2. ESTROPROGESTATIVE [ETHINYL ESTRADIOL\LEVONORGESTREL] [Suspect]
     Active Substance: ETHINYL ESTRADIOL\LEVONORGESTREL
     Indication: HORMONE THERAPY
     Dosage: UNK
     Route: 065
  3. ETHINYLESTRADIOL [Suspect]
     Active Substance: ETHINYL ESTRADIOL
     Indication: HORMONE THERAPY
     Dosage: 20 MICROGRAM
     Route: 065

REACTIONS (1)
  - Treatment failure [Unknown]
